FAERS Safety Report 5164970-9 (Version None)
Quarter: 2006Q4

REPORT INFORMATION
  Report Type: 
  Country: None (occurrence: None)
  Receive Date: 20061124
  Receipt Date: 20061109
  Transmission Date: 20070319
  Serious: Yes (Other)
  Sender: FDA-Public Use
  Company Number: 2006142014

PATIENT
  Age: 70 Year
  Sex: Female
  Weight: 56 kg

DRUGS (1)
  1. LYRICA [Suspect]
     Indication: NEURALGIA
     Dosage: 75 MG
     Dates: start: 20061009, end: 20061016

REACTIONS (2)
  - DEPRESSION [None]
  - PARAESTHESIA [None]
